FAERS Safety Report 24727793 (Version 1)
Quarter: 2024Q4

REPORT INFORMATION
  Report Type: Spontaneous
  Country: US (occurrence: None)
  Receive Date: 20241211
  Receipt Date: 20241211
  Transmission Date: 20250115
  Serious: No
  Sender: Public
  Company Number: None

PATIENT
  Sex: 0

DRUGS (2)
  1. SODIUM CITRATE [Suspect]
     Active Substance: SODIUM CITRATE
  2. ACD-A [Suspect]
     Active Substance: CITRIC ACID MONOHYDRATE\DEXTROSE MONOHYDRATE\SODIUM CITRATE

REACTIONS (4)
  - Product packaging confusion [None]
  - Product label confusion [None]
  - Product barcode issue [None]
  - Wrong drug [None]
